FAERS Safety Report 8799469 (Version 1)
Quarter: 2012Q4

REPORT INFORMATION
  Report Type: Report from Study
  Country: DE (occurrence: DE)
  Receive Date: 20120919
  Receipt Date: 20120919
  Transmission Date: 20130627
  Serious: Yes (Other)
  Sender: FDA-Public Use
  Company Number: DE-B.I. PHARMACEUTICALS,INC./RIDGEFIELD-2012-DE-02165DE

PATIENT
  Age: 1 Year
  Sex: Female
  Weight: 10 kg

DRUGS (2)
  1. SPIRIVA [Suspect]
     Dosage: 1 anz
     Route: 048
     Dates: start: 20120912, end: 20120912
  2. RAMIPRIL [Suspect]
     Dosage: 1 anz
     Route: 048
     Dates: start: 20120912, end: 20120912

REACTIONS (3)
  - Accidental exposure to product by child [Unknown]
  - Agitation [Unknown]
  - Tachycardia [Unknown]
